FAERS Safety Report 18402223 (Version 2)
Quarter: 2021Q3

REPORT INFORMATION
  Report Type: Report from Study
  Country: US (occurrence: US)
  Receive Date: 20201019
  Receipt Date: 20210907
  Transmission Date: 20211014
  Serious: No
  Sender: FDA-Public Use
  Company Number: NVSC2020US276627

PATIENT
  Sex: Male

DRUGS (1)
  1. COSENTYX [Suspect]
     Active Substance: SECUKINUMAB
     Indication: PSORIASIS
     Dosage: 300 MG, QMO
     Route: 058

REACTIONS (3)
  - Arthralgia [Unknown]
  - Drug ineffective [Recovering/Resolving]
  - Psoriasis [Unknown]
